FAERS Safety Report 5856556-5 (Version None)
Quarter: 2008Q3

REPORT INFORMATION
  Report Type: 
  Country: None (occurrence: None)
  Receive Date: 20080822
  Receipt Date: 20080822
  Transmission Date: 20090109
  Serious: Yes (Other)
  Sender: FDA-Public Use
  Company Number: None

PATIENT
  Sex: Female
  Weight: 64 kg

DRUGS (1)
  1. CLINDAMYCIN HCL [Suspect]
     Indication: ORAL INFECTION
     Dosage: 300 MG 4X PER DAY FOR 10 DAYS ORAL
     Route: 048
     Dates: start: 20080529, end: 20080607

REACTIONS (1)
  - RECTAL HAEMORRHAGE [None]
